FAERS Safety Report 10779480 (Version 1)
Quarter: 2015Q1

REPORT INFORMATION
  Report Type: Spontaneous
  Country: US (occurrence: None)
  Receive Date: 20150206
  Receipt Date: 20150206
  Transmission Date: 20150721
  Serious: Yes (Death)
  Sender: FDA-Public Use
  Company Number: None

PATIENT
  Age: 58 Year
  Sex: Male

DRUGS (2)
  1. PROCRIT [Suspect]
     Active Substance: ERYTHROPOIETIN
     Indication: ANAEMIA OF CHRONIC DISEASE
     Route: 058
     Dates: start: 20140508, end: 20150204
  2. PROCRIT [Suspect]
     Active Substance: ERYTHROPOIETIN
     Route: 058
     Dates: start: 20140508, end: 20150204

REACTIONS (2)
  - Prothrombin time shortened [None]
  - Disease progression [None]

NARRATIVE: CASE EVENT DATE: 20150204
